FAERS Safety Report 24465830 (Version 1)
Quarter: 2024Q4

REPORT INFORMATION
  Report Type: Report from Study
  Country: US (occurrence: US)
  Receive Date: 20241018
  Receipt Date: 20241018
  Transmission Date: 20250115
  Serious: No
  Sender: ROCHE
  Company Number: US-ROCHE-3533978

PATIENT
  Age: 81 Year
  Sex: Female
  Weight: 78.93 kg

DRUGS (22)
  1. XOLAIR [Suspect]
     Active Substance: OMALIZUMAB
     Indication: Urticaria
     Route: 058
     Dates: start: 20231214, end: 20231214
  2. XOLAIR [Suspect]
     Active Substance: OMALIZUMAB
  3. ALLEGRA [Concomitant]
     Active Substance: FEXOFENADINE HYDROCHLORIDE
     Indication: Urticaria
     Dates: start: 20231214
  4. EPIPEN [Concomitant]
     Active Substance: EPINEPHRINE
     Indication: Hypersensitivity
     Dates: start: 20231214
  5. ALPRAZOLAM [Concomitant]
     Active Substance: ALPRAZOLAM
  6. BUSPIRONE [Concomitant]
     Active Substance: BUSPIRONE HYDROCHLORIDE
     Dosage: 1 TABLET, 3 TIMES PER DAY AS NEEDED ;ONGOING: UNKNOWN
     Route: 048
  7. CLOBETASOL [Concomitant]
     Active Substance: CLOBETASOL
     Dosage: APPLY TO AFFECTED AREA EVERY OTHER NIGHT ;ONGOING: UNKNOWN
     Route: 061
  8. CLOBETASOL [Concomitant]
     Active Substance: CLOBETASOL
     Dosage: APPLY TO AFFECTED AREA EVERY BEDTIME FOR 4 WEEKS ;ONGOING: UNKNOWN
     Route: 061
  9. CYPROHEPTADINE HYDROCHLORIDE [Concomitant]
     Active Substance: CYPROHEPTADINE HYDROCHLORIDE
  10. FLUCONAZOLE [Concomitant]
     Active Substance: FLUCONAZOLE
     Dosage: 1 TABLET, ONCE A DAY FOR 90 DAYS ;ONGOING: UNKNOWN
     Route: 048
  11. GABAPENTIN [Concomitant]
     Active Substance: GABAPENTIN
  12. HYDROCHLOROTHIAZIDE [Concomitant]
     Active Substance: HYDROCHLOROTHIAZIDE
  13. LORAZEPAM [Concomitant]
     Active Substance: LORAZEPAM
  14. LOSARTAN [Concomitant]
     Active Substance: LOSARTAN
  15. METFORMIN [Concomitant]
     Active Substance: METFORMIN HYDROCHLORIDE
  16. MONTELUKAST [Concomitant]
     Active Substance: MONTELUKAST
  17. OMEPRAZOLE [Concomitant]
     Active Substance: OMEPRAZOLE
  18. SERTRALINE [Concomitant]
     Active Substance: SERTRALINE HYDROCHLORIDE
  19. VALACYCLOVIR [Concomitant]
     Active Substance: VALACYCLOVIR HYDROCHLORIDE
  20. YUVAFEM [Concomitant]
     Active Substance: ESTRADIOL HEMIHYDRATE
  21. BETAMETHASONE DIPROPIONATE [Concomitant]
     Active Substance: BETAMETHASONE DIPROPIONATE
  22. NYSTATIN [Concomitant]
     Active Substance: NYSTATIN

REACTIONS (3)
  - Alopecia [Unknown]
  - Pruritus [Unknown]
  - Off label use [Unknown]
